FAERS Safety Report 22098848 (Version 3)
Quarter: 2023Q2

REPORT INFORMATION
  Report Type: Spontaneous
  Country: US (occurrence: US)
  Receive Date: 20230315
  Receipt Date: 20230420
  Transmission Date: 20230722
  Serious: Yes (Death, Hospitalization)
  Sender: FDA-Public Use
  Company Number: US-PFIZER INC-202300107773

PATIENT
  Age: 83 Year
  Sex: Male
  Weight: 65.76 kg

DRUGS (2)
  1. VYNDAMAX [Suspect]
     Active Substance: TAFAMIDIS
     Indication: Amyloidosis
     Dosage: 61 MG, 1X/DAY
     Dates: end: 20230309
  2. AMIODARONE [Concomitant]
     Active Substance: AMIODARONE
     Dosage: UNK
     Dates: start: 20230202, end: 2023

REACTIONS (11)
  - Haematological infection [Fatal]
  - Shock [Fatal]
  - Sepsis [Fatal]
  - Hypotension [Fatal]
  - Renal failure [Fatal]
  - Gait disturbance [Fatal]
  - Dysstasia [Fatal]
  - Atrial fibrillation [Fatal]
  - Peripheral swelling [Unknown]
  - Fluid retention [Unknown]
  - Off label use [Unknown]

NARRATIVE: CASE EVENT DATE: 20230301
